FAERS Safety Report 5302846-4 (Version None)
Quarter: 2007Q2

REPORT INFORMATION
  Report Type: 
  Country: None (occurrence: None)
  Receive Date: 20070417
  Receipt Date: 20070417
  Transmission Date: 20071010
  Serious: Yes (Hospitalization)
  Sender: FDA-Public Use
  Company Number: None

PATIENT
  Age: 53 Year
  Sex: Male

DRUGS (2)
  1. PROLASTIN [Suspect]
     Indication: ALPHA-1 ANTI-TRYPSIN DEFICIENCY
     Dosage: 60MG/KG WEEKLY IV
     Route: 042
     Dates: start: 20070207
  2. PROLASTIN [Suspect]
     Dates: start: 20060404

REACTIONS (4)
  - CONDITION AGGRAVATED [None]
  - GENERALISED ERYTHEMA [None]
  - PNEUMONITIS [None]
  - RESPIRATORY TRACT INFECTION [None]
